FAERS Safety Report 15093697 (Version 1)
Quarter: 2018Q2

REPORT INFORMATION
  Report Type: Spontaneous
  Country: SE (occurrence: SE)
  Receive Date: 20180629
  Receipt Date: 20180629
  Transmission Date: 20180711
  Serious: Yes (Other)
  Sender: FDA-Public Use
  Company Number: SE-SHIRE-SE201728780

PATIENT

DRUGS (3)
  1. PAROXETINE. [Concomitant]
     Active Substance: PAROXETINE
     Indication: PRODUCT USED FOR UNKNOWN INDICATION
     Dosage: NEDTRAPPNING FR?N 40 MG MED 10 MG PER VECKA TILL 0 MG INNAN INS?TTNING AV CONCERTA
     Dates: end: 201708
  2. ELVANSE [Suspect]
     Active Substance: LISDEXAMFETAMINE DIMESYLATE
     Indication: ATTENTION DEFICIT/HYPERACTIVITY DISORDER
     Route: 065
     Dates: start: 20170918, end: 20170926
  3. CONCERTA [Suspect]
     Active Substance: METHYLPHENIDATE HYDROCHLORIDE
     Indication: ATTENTION DEFICIT/HYPERACTIVITY DISORDER
     Route: 065
     Dates: start: 20170904, end: 20170915

REACTIONS (13)
  - Abdominal pain [Not Recovered/Not Resolved]
  - Irritability [Not Recovered/Not Resolved]
  - Dissociation [Recovered/Resolved]
  - Anger [Not Recovered/Not Resolved]
  - Migraine [Unknown]
  - Affect lability [Recovered/Resolved]
  - Limb discomfort [Recovered/Resolved]
  - Anxiety [Recovered/Resolved]
  - Impatience [Not Recovered/Not Resolved]
  - Formication [Recovered/Resolved]
  - Mood swings [Recovered/Resolved]
  - Dyspnoea [Recovered/Resolved]
  - Myalgia [Not Recovered/Not Resolved]

NARRATIVE: CASE EVENT DATE: 201709
